FAERS Safety Report 20776168 (Version 3)
Quarter: 2022Q3

REPORT INFORMATION
  Report Type: Report from Study
  Country: US (occurrence: US)
  Receive Date: 20220502
  Receipt Date: 20220926
  Transmission Date: 20221027
  Serious: Yes (Other)
  Sender: FDA-Public Use
  Company Number: US-CELGENE-USA-20220207009

PATIENT
  Age: 60 Year
  Sex: Female
  Weight: 72.57 kg

DRUGS (3)
  1. REVLIMID [Suspect]
     Active Substance: LENALIDOMIDE
     Indication: Plasma cell myeloma
     Dosage: 25 MILLIGRAM?FOR 21 DAYS 7 DAYS OFF
     Route: 048
     Dates: start: 20211223
  2. REVLIMID [Suspect]
     Active Substance: LENALIDOMIDE
     Indication: Myelodysplastic syndrome
     Dosage: 25 MG, 21 DAYS 7 DAYS OFF
     Route: 048
     Dates: start: 20211223
  3. REVLIMID [Suspect]
     Active Substance: LENALIDOMIDE
     Dosage: 1 CAPSULE
     Route: 048
     Dates: start: 20211223

REACTIONS (7)
  - Illness [Unknown]
  - Blood pressure increased [Unknown]
  - Anxiety [Unknown]
  - Flushing [Unknown]
  - Limb discomfort [Unknown]
  - Asthenia [Unknown]
  - Fatigue [Unknown]

NARRATIVE: CASE EVENT DATE: 20220923
